FAERS Safety Report 8307507-5 (Version None)
Quarter: 2012Q2

REPORT INFORMATION
  Report Type: 
  Country: None (occurrence: None)
  Receive Date: 20120424
  Receipt Date: 20120412
  Transmission Date: 20120825
  Serious: Yes (Death, Hospitalization, Other)
  Sender: FDA-Public Use
  Company Number: US-SANOFI-AVENTIS-2012SA023275

PATIENT
  Sex: Male
  Weight: 87 kg

DRUGS (16)
  1. ATENOLOL [Concomitant]
     Indication: BLOOD PRESSURE
     Dosage: STRENGTH: 50 MILLIGRAM, RX 30 6 REFILLS
     Route: 048
  2. LOPERAMIDE [Concomitant]
     Dosage: 1-2 TABLETS
     Route: 048
  3. ONDANSETRON [Concomitant]
     Indication: NAUSEA
     Dosage: START 12H POST CHEMOX7 DAYS
     Route: 048
  4. ONDANSETRON [Concomitant]
     Indication: VOMITING
     Dosage: START 12H POST CHEMOX7 DAYS
     Route: 048
  5. FENTANYL [Concomitant]
     Indication: PAIN
     Dosage: 50MCG Q72 HOUR PATCH
  6. LOMOTIL [Concomitant]
     Dosage: UPTO 8 TABS PER DAY
     Route: 048
  7. CISPLATIN [Suspect]
     Indication: LIP AND/OR ORAL CAVITY CANCER RECURRENT
     Route: 065
     Dates: start: 20120317, end: 20120326
  8. BLINDED THERAPY [Suspect]
     Indication: LIP AND/OR ORAL CAVITY CANCER RECURRENT
     Dosage: STRENGTH: 150 MG/ TABLET
     Route: 048
     Dates: start: 20120317, end: 20120326
  9. DEXAMETHASONE [Concomitant]
     Indication: VOMITING
     Dosage: STRENGTH: 4 MG, STAT 12H POST CHEMOX3 DAYS
     Route: 048
  10. DOCETAXEL [Suspect]
     Indication: LIP AND/OR ORAL CAVITY CANCER RECURRENT
     Route: 065
     Dates: start: 20120317, end: 20120326
  11. DEXAMETHASONE [Concomitant]
     Indication: NAUSEA
     Dosage: STRENGTH: 4 MG, STAT 12H POST CHEMOX3 DAYS
     Route: 048
  12. LOMOTIL [Concomitant]
     Dosage: UPTO 8 TABS PER DAY
     Route: 048
  13. NEULASTA [Concomitant]
  14. HYDROCODONE BITARTRATE + ACETAMINOPHEN [Concomitant]
     Indication: PAIN
     Dosage: 1-2 TABLETS, 5/500 MILLIGRAM Q4-6HPM
     Route: 048
  15. LISINOPRIL [Concomitant]
     Indication: BLOOD PRESSURE
     Dosage: STRENGTH: 5 MG, RX 30 6 REFILLS
     Route: 048
  16. LOPERAMIDE [Concomitant]
     Dosage: 1-2 TABLETS
     Route: 048

REACTIONS (11)
  - DEHYDRATION [None]
  - RESPIRATORY FAILURE [None]
  - HYPOXIC-ISCHAEMIC ENCEPHALOPATHY [None]
  - STOMATITIS [None]
  - DIARRHOEA [None]
  - DEATH [None]
  - LEUKOCYTOSIS [None]
  - CARDIAC ARREST [None]
  - ORAL PAIN [None]
  - DYSPHAGIA [None]
  - DECREASED APPETITE [None]
